FAERS Safety Report 9889083 (Version 1)
Quarter: 2014Q1

REPORT INFORMATION
  Report Type: Spontaneous
  Country: US (occurrence: None)
  Receive Date: 20140210
  Receipt Date: 20140210
  Transmission Date: 20141002
  Serious: No
  Sender: FDA-Public Use
  Company Number: None

PATIENT
  Age: 175 None
  Sex: Female
  Weight: 79.38 kg

DRUGS (1)
  1. CONCERTA 36MG [Suspect]
     Indication: ATTENTION DEFICIT/HYPERACTIVITY DISORDER
     Dosage: 2 PILLS ONCE DAILY TAKEN BY MOUTH
     Route: 048
     Dates: start: 20130501, end: 20140208

REACTIONS (9)
  - Product substitution issue [None]
  - Drug ineffective [None]
  - Weight increased [None]
  - Impulsive behaviour [None]
  - Disturbance in attention [None]
  - Weight increased [None]
  - Increased appetite [None]
  - Educational problem [None]
  - Aggression [None]
